FAERS Safety Report 18886464 (Version 1)
Quarter: 2021Q1

REPORT INFORMATION
  Report Type: Spontaneous
  Country: US (occurrence: US)
  Receive Date: 20210212
  Receipt Date: 20210212
  Transmission Date: 20210420
  Serious: Yes (Other)
  Sender: FDA-Public Use
  Company Number: NVSC2021US029256

PATIENT
  Sex: Male
  Weight: 8 kg

DRUGS (1)
  1. KYMRIAH [Suspect]
     Active Substance: TISAGENLECLEUCEL
     Indication: ACUTE LYMPHOCYTIC LEUKAEMIA
     Dosage: 26 ML, ONCE/SINGLE (INTO BLOODSTREAM VIA VEIN)
     Route: 042
     Dates: start: 20201109, end: 20201109

REACTIONS (3)
  - B-lymphocyte count abnormal [Unknown]
  - Drug ineffective [Unknown]
  - Acute lymphocytic leukaemia recurrent [Unknown]
